FAERS Safety Report 7074755-4 (Version None)
Quarter: 2010Q4

REPORT INFORMATION
  Report Type: 
  Country: None (occurrence: None)
  Receive Date: 20101029
  Receipt Date: 20101025
  Transmission Date: 20110411
  Serious: Yes (Other)
  Sender: FDA-Public Use
  Company Number: FR-GILEAD-2010-0032938

PATIENT
  Age: 47 Year
  Sex: Male

DRUGS (6)
  1. VIREAD [Suspect]
     Indication: HIV INFECTION
     Route: 048
     Dates: start: 20050427
  2. VIREAD [Suspect]
     Indication: ACQUIRED IMMUNODEFICIENCY SYNDROME
  3. ZIAGEN [Suspect]
     Route: 048
     Dates: start: 20050427
  4. NORVIR [Suspect]
     Route: 048
     Dates: start: 20050427
  5. REYATAZ [Suspect]
     Route: 048
     Dates: start: 20050427
  6. CRESTOR [Concomitant]
     Dates: start: 20100824

REACTIONS (1)
  - GYNAECOMASTIA [None]
